FAERS Safety Report 18150318 (Version 2)
Quarter: 2020Q3

REPORT INFORMATION
  Report Type: Spontaneous
  Country: HU (occurrence: HU)
  Receive Date: 20200814
  Receipt Date: 20200828
  Transmission Date: 20201103
  Serious: Yes (Other)
  Sender: FDA-Public Use
  Company Number: HU-BEH-2020121035

PATIENT
  Age: 48 Year
  Sex: Female

DRUGS (1)
  1. ALBUMIN HUMAN (NC) [Suspect]
     Active Substance: ALBUMIN HUMAN
     Indication: MYELITIS
     Route: 065

REACTIONS (3)
  - Product use in unapproved indication [Unknown]
  - Oedema [Unknown]
  - No adverse event [Unknown]
